FAERS Safety Report 4448063-1 (Version None)
Quarter: 2004Q3

REPORT INFORMATION
  Report Type: 
  Country: None (occurrence: None)
  Receive Date: 20040817
  Receipt Date: 20040609
  Transmission Date: 20050211
  Serious: Yes (Other)
  Sender: FDA-Public Use
  Company Number: PHEH2004US06316

PATIENT
  Age: 79 Year
  Sex: Male

DRUGS (4)
  1. DIOVAN [Suspect]
     Indication: HYPERTENSION
     Dosage: 320 MG,  QD AT 5-6 PM, ORAL
     Route: 048
     Dates: start: 20020101
  2. HYTRIN [Suspect]
     Indication: HYPERTENSION
     Dosage: DAILY AT 5-6 PM, ORAL
     Route: 048
     Dates: start: 20020101
  3. LISINOPRIL [Concomitant]
  4. PLENDIL [Concomitant]

REACTIONS (1)
  - LOSS OF CONSCIOUSNESS [None]
